FAERS Safety Report 10661916 (Version 1)
Quarter: 2014Q4

REPORT INFORMATION
  Report Type: Spontaneous
  Country: US (occurrence: None)
  Receive Date: 20141217
  Receipt Date: 20141217
  Transmission Date: 20150529
  Serious: No
  Sender: FDA-Public Use
  Company Number: None

PATIENT
  Sex: Male

DRUGS (1)
  1. STIVARGA [Suspect]
     Active Substance: REGORAFENIB
     Indication: SOFT TISSUE SARCOMA
     Route: 048
     Dates: start: 20140329

REACTIONS (6)
  - Arthralgia [None]
  - Fatigue [None]
  - Blister [None]
  - Headache [None]
  - Gingival swelling [None]
  - Gingival abscess [None]
